FAERS Safety Report 14054535 (Version 1)
Quarter: 2017Q4

REPORT INFORMATION
  Report Type: Spontaneous
  Country: US (occurrence: None)
  Receive Date: 20171006
  Receipt Date: 20171006
  Transmission Date: 20180321
  Serious: No
  Sender: FDA-Public Use
  Company Number: None

PATIENT

DRUGS (3)
  1. ATORVASTATIN CALCIUM ATORVASTATIN [Suspect]
     Active Substance: ATORVASTATIN CALCIUM
  2. CEFIXIME CEFIXIME [Suspect]
     Active Substance: CEFIXIME
  3. PARACETAMOL PARACETAMOL [Suspect]
     Active Substance: ACETAMINOPHEN

REACTIONS (3)
  - Incorrect dose administered [None]
  - Seizure [None]
  - Drug dose omission [None]
